FAERS Safety Report 19516205 (Version 1)
Quarter: 2021Q3

REPORT INFORMATION
  Report Type: Spontaneous
  Country: US (occurrence: US)
  Receive Date: 20210709
  Receipt Date: 20210709
  Transmission Date: 20211014
  Serious: No
  Sender: FDA-Public Use
  Company Number: US-ASTELLAS-2021US010976

PATIENT
  Age: 73 Year
  Sex: Female

DRUGS (1)
  1. MYRBETRIQ [Suspect]
     Active Substance: MIRABEGRON
     Indication: URINARY RETENTION
     Dosage: UNK, UNKNOWN FREQ. (STARTED AND STOPPED 2 YEARS AGO)
     Route: 065
     Dates: start: 2019, end: 2019

REACTIONS (5)
  - Anaemia [Unknown]
  - Condition aggravated [Unknown]
  - Rash [Unknown]
  - Urinary incontinence [Unknown]
  - Product use in unapproved indication [Unknown]

NARRATIVE: CASE EVENT DATE: 2019
